FAERS Safety Report 7443223-X (Version None)
Quarter: 2011Q2

REPORT INFORMATION
  Report Type: 
  Country: None (occurrence: None)
  Receive Date: 20110428
  Receipt Date: 20110420
  Transmission Date: 20111010
  Serious: Yes (Disabling)
  Sender: FDA-Public Use
  Company Number: B0714287A

PATIENT
  Age: 31 Year
  Sex: Male
  Weight: 66.9 kg

DRUGS (4)
  1. LAMIVUDINE [Concomitant]
  2. RALTEGRAVIR [Concomitant]
  3. ABACAVIR [Suspect]
     Route: 048
  4. CARBOPLATIN [Concomitant]

REACTIONS (6)
  - EPISTAXIS [None]
  - MUSCLE SWELLING [None]
  - DRUG HYPERSENSITIVITY [None]
  - HEADACHE [None]
  - CONSTIPATION [None]
  - RASH [None]
